FAERS Safety Report 9622769 (Version 1)
Quarter: 2013Q4

REPORT INFORMATION
  Report Type: Spontaneous
  Country: ZA (occurrence: ZA)
  Receive Date: 20131015
  Receipt Date: 20131015
  Transmission Date: 20140711
  Serious: Yes (Death)
  Sender: FDA-Public Use
  Company Number: ZA-JNJFOC-20131007743

PATIENT
  Age: 62 Year
  Sex: Female

DRUGS (1)
  1. REVELLEX [Suspect]
     Indication: RHEUMATOID ARTHRITIS
     Route: 042
     Dates: start: 20130925

REACTIONS (1)
  - Myocardial infarction [Fatal]
